FAERS Safety Report 24073413 (Version 1)
Quarter: 2024Q3

REPORT INFORMATION
  Report Type: Spontaneous
  Country: FR (occurrence: None)
  Receive Date: 20240710
  Receipt Date: 20240710
  Transmission Date: 20241017
  Serious: Yes (Death, Other)
  Sender: ASTRAZENECA
  Company Number: 2024A157129

PATIENT
  Age: 66 Year
  Sex: Male

DRUGS (1)
  1. DURVALUMAB [Suspect]
     Active Substance: DURVALUMAB
     Indication: Non-small cell lung cancer
     Route: 042

REACTIONS (6)
  - Nervous system disorder [Fatal]
  - Malignant neoplasm progression [Unknown]
  - Metastases to bone [Unknown]
  - Haematotoxicity [Unknown]
  - Asthenia [Unknown]
  - Constipation [Unknown]
